FAERS Safety Report 9805921 (Version 1)
Quarter: 2014Q1

REPORT INFORMATION
  Report Type: Report from Study
  Country: IN (occurrence: IN)
  Receive Date: 20140109
  Receipt Date: 20140109
  Transmission Date: 20141002
  Serious: Yes (Death)
  Sender: FDA-Public Use
  Company Number: IN-SA-2014SA000734

PATIENT
  Age: 45 Year
  Sex: Female

DRUGS (2)
  1. TAXOTERE [Suspect]
     Indication: TONGUE NEOPLASM MALIGNANT STAGE UNSPECIFIED
     Dosage: ROUTE: IVR
     Dates: start: 20131112, end: 20131112
  2. TAXOTERE [Suspect]
     Indication: TONGUE NEOPLASM MALIGNANT STAGE UNSPECIFIED
     Dosage: ROUTE: IVR
     Dates: start: 20131202, end: 20131202

REACTIONS (2)
  - Asthenia [Fatal]
  - Diarrhoea [Unknown]
